FAERS Safety Report 21624641 (Version 5)
Quarter: 2024Q3

REPORT INFORMATION
  Report Type: Spontaneous
  Country: JP (occurrence: JP)
  Receive Date: 20221121
  Receipt Date: 20240906
  Transmission Date: 20241016
  Serious: Yes (Hospitalization, Other)
  Sender: BRISTOL MYERS SQUIBB
  Company Number: JP-ONO-2022JP030910

PATIENT
  Age: 76 Year
  Sex: Male

DRUGS (3)
  1. OPDIVO [Suspect]
     Active Substance: NIVOLUMAB
     Indication: Non-small cell lung cancer recurrent
     Route: 041
  2. PILSICAINIDE HYDROCHLORIDE [Concomitant]
     Active Substance: PILSICAINIDE HYDROCHLORIDE
     Indication: Bradycardia
  3. PILSICAINIDE HYDROCHLORIDE [Concomitant]
     Active Substance: PILSICAINIDE HYDROCHLORIDE
     Indication: Supraventricular extrasystoles

REACTIONS (4)
  - Atrioventricular block complete [Recovered/Resolved]
  - Immune-mediated myositis [Unknown]
  - Immune-mediated myocarditis [Recovered/Resolved]
  - Immune-mediated hepatic disorder [Unknown]
